FAERS Safety Report 10022105 (Version 1)
Quarter: 2014Q1

REPORT INFORMATION
  Report Type: Report from Study
  Country: US (occurrence: US)
  Receive Date: 20140319
  Receipt Date: 20140319
  Transmission Date: 20141002
  Serious: Yes (Hospitalization)
  Sender: FDA-Public Use
  Company Number: US-GLAXOSMITHKLINE-A1065125D

PATIENT
  Age: 73 Year
  Sex: Male
  Weight: 75.6 kg

DRUGS (11)
  1. PAZOPANIB [Suspect]
     Indication: RENAL CELL CARCINOMA
     Dosage: 600MG CYCLIC
     Route: 048
     Dates: start: 20130320
  2. BEVACIZUMAB [Suspect]
     Indication: RENAL CELL CARCINOMA
     Dosage: 5MGK CYCLIC
     Route: 042
     Dates: start: 20130424
  3. LOVENOX [Concomitant]
     Dates: start: 20130324
  4. AMLODIPINE [Concomitant]
     Dates: start: 20130403
  5. ZOFRAN [Concomitant]
     Dates: start: 20130416
  6. DILAUDID [Concomitant]
     Dates: start: 20130417
  7. METHADONE [Concomitant]
     Dates: start: 20130417
  8. MILK OF MAGNESIA [Concomitant]
     Dates: start: 20130422
  9. DOCUSATE [Concomitant]
     Dates: start: 20130422
  10. PRILOSEC [Concomitant]
     Dates: start: 20130513
  11. REGLAN [Concomitant]
     Dates: start: 20130520

REACTIONS (1)
  - Atrial fibrillation [Unknown]
